FAERS Safety Report 6749994-X (Version None)
Quarter: 2010Q2

REPORT INFORMATION
  Report Type: 
  Country: None (occurrence: None)
  Receive Date: 20100601
  Receipt Date: 20100526
  Transmission Date: 20101027
  Serious: Yes (Other)
  Sender: FDA-Public Use
  Company Number: US-B.I. PHARMACEUTICALS,INC./RIDGEFIELD-2010-BP-05895BP

PATIENT
  Age: 77 Year
  Sex: Female

DRUGS (7)
  1. MICARDIS [Suspect]
     Indication: HYPERTENSION
     Dosage: 40 MG
     Route: 048
     Dates: end: 20070101
  2. MICARDIS [Suspect]
     Dosage: 80 MG
     Route: 048
     Dates: start: 20070101
  3. NAMENDA [Concomitant]
     Indication: DEMENTIA ALZHEIMER'S TYPE
  4. ARICEPT [Concomitant]
     Indication: DEMENTIA ALZHEIMER'S TYPE
  5. ANTIDEPRESSANT [Concomitant]
     Indication: DEPRESSION
  6. SYNTHROID [Concomitant]
     Indication: THYROID DISORDER
  7. SEREX [Concomitant]
     Indication: DEMENTIA ALZHEIMER'S TYPE

REACTIONS (3)
  - DEPRESSED LEVEL OF CONSCIOUSNESS [None]
  - HYPOTENSION [None]
  - LOSS OF CONSCIOUSNESS [None]
